FAERS Safety Report 4332836-X (Version None)
Quarter: 2004Q1

REPORT INFORMATION
  Report Type: 
  Country: None (occurrence: None)
  Receive Date: 20040330
  Receipt Date: 20040312
  Transmission Date: 20041129
  Serious: Yes (Hospitalization)
  Sender: FDA-Public Use
  Company Number: A01200401173

PATIENT
  Age: 67 Year
  Sex: Male

DRUGS (14)
  1. PLAVIX [Suspect]
     Indication: CORONARY ARTERIAL STENT INSERTION
     Dosage: 75 MG QD,  (THERAPY DURATION: NI - TIME TO ONSET: 2 MONTHS)
     Route: 048
  2. SINTROM [Suspect]
     Indication: HEART VALVE REPLACEMENT
     Dosage: DEPENDING ON INR  (THERAPY DATES:  NI - TIME TO ONSET : 8 YEARS)
     Route: 048
     Dates: start: 19960101
  3. CEDUR - SLOW RELEASE - (BEZAFIBRATE) [Suspect]
     Indication: HYPERCHOLESTEROLAEMIA
     Dosage: 400 MG QD  (THERAPY DURATION: A FEW MONTHS
     Route: 048
  4. ZOLOFT [Suspect]
     Indication: DEPRESSION
     Dosage: 50 MG QD,      (THERAPY DURATION: A FEW MONTHS)
     Route: 048
  5. NEXIUM [Suspect]
     Indication: PROPHYLAXIS
     Dosage: 40 MG QD   (THERAPY DURATION: A FEW MONTHS)
     Route: 048
  6. NEXIUM [Suspect]
     Indication: ULCER
     Dosage: 40 MG QD   (THERAPY DURATION: A FEW MONTHS)
     Route: 048
  7. BELOC (METOPROLOL TARTRATE) [Concomitant]
  8. MAXIPIME [Concomitant]
  9. ACETAMINOPHEN [Concomitant]
  10. TEMGESIC (BUPRENORPHINE HYDROCHLORIDE) [Concomitant]
  11. CLONAZEPAM [Concomitant]
  12. SODIUM POLYSTYRENE SULFONATE [Concomitant]
  13. ACETATE CALCIUM       (CALCIUM ACETATE) [Concomitant]
  14. RECORMON (ERYTHROPOIETIN HUMAN) [Concomitant]

REACTIONS (7)
  - ACTIVATED PARTIAL THROMBOPLASTIN TIME PROLONGED [None]
  - CAROTID ARTERY STENOSIS [None]
  - DIVERTICULUM INTESTINAL [None]
  - EPISTAXIS [None]
  - INTERNATIONAL NORMALISED RATIO INCREASED [None]
  - PERIPHERAL OCCLUSIVE DISEASE [None]
  - RECTAL HAEMORRHAGE [None]
